FAERS Safety Report 6239920-4 (Version None)
Quarter: 2009Q2

REPORT INFORMATION
  Report Type: 
  Country: None (occurrence: None)
  Receive Date: 20090618
  Receipt Date: 20090618
  Transmission Date: 20091009
  Serious: Yes (Other)
  Sender: FDA-Public Use
  Company Number: None

PATIENT
  Sex: Male
  Weight: 87.9978 kg

DRUGS (1)
  1. CRESTOR [Suspect]
     Indication: LIPIDS INCREASED
     Dosage: 20MG 1 PO
     Route: 048
     Dates: start: 20090616, end: 20090616

REACTIONS (3)
  - NAUSEA [None]
  - PHARYNGEAL OEDEMA [None]
  - VISION BLURRED [None]
